FAERS Safety Report 9391846 (Version 1)
Quarter: 2013Q3

REPORT INFORMATION
  Report Type: Spontaneous
  Country: FR (occurrence: FR)
  Receive Date: 20130709
  Receipt Date: 20130709
  Transmission Date: 20140515
  Serious: Yes (Life-Threatening, Hospitalization, Disabling)
  Sender: FDA-Public Use
  Company Number: FR-ABBOTT-13P-056-1116255-00

PATIENT
  Age: 47 Year
  Sex: Female

DRUGS (2)
  1. HUMIRA [Suspect]
     Indication: PSORIATIC ARTHROPATHY
     Route: 058
     Dates: start: 201007, end: 201209
  2. NOVATREX [Suspect]
     Indication: PSORIATIC ARTHROPATHY
     Dates: start: 201208, end: 201303

REACTIONS (1)
  - Acute coronary syndrome [Not Recovered/Not Resolved]
